FAERS Safety Report 15774160 (Version 1)
Quarter: 2018Q4

REPORT INFORMATION
  Report Type: Spontaneous
  Country: NL (occurrence: NL)
  Receive Date: 20181229
  Receipt Date: 20181229
  Transmission Date: 20190205
  Serious: Yes (Death, Other)
  Sender: FDA-Public Use
  Company Number: NL-AUROBINDO-AUR-APL-2018-063491

PATIENT
  Age: 7 Day
  Sex: Female
  Weight: .5 kg

DRUGS (2)
  1. BENZYLPENICILLINE [Concomitant]
     Active Substance: PENICILLIN G
     Indication: INFECTION
     Dosage: UNK
     Route: 065
  2. IBUPROFEN. [Suspect]
     Active Substance: IBUPROFEN
     Indication: PATENT DUCTUS ARTERIOSUS
     Dosage: 20 MILLIGRAM/KILOGRAM, ONCE A DAY
     Route: 042
     Dates: start: 20180602, end: 20180602

REACTIONS (2)
  - Overdose [Recovered/Resolved]
  - Intestinal perforation [Fatal]

NARRATIVE: CASE EVENT DATE: 20180602
